FAERS Safety Report 25162419 (Version 3)
Quarter: 2025Q2

REPORT INFORMATION
  Report Type: Spontaneous
  Country: IT (occurrence: IT)
  Receive Date: 20250404
  Receipt Date: 20250528
  Transmission Date: 20250717
  Serious: Yes (Life-Threatening, Hospitalization)
  Sender: BIOMARIN
  Company Number: IT-BIOMARINAP-IT-2025-164892

PATIENT

DRUGS (1)
  1. ROCTAVIAN [Suspect]
     Active Substance: VALOCTOCOGENE ROXAPARVOVEC-RVOX
     Indication: Factor VIII deficiency
     Route: 042
     Dates: start: 20240604, end: 20240604

REACTIONS (2)
  - Transitional cell carcinoma [Not Recovered/Not Resolved]
  - Haematuria [Recovered/Resolved]

NARRATIVE: CASE EVENT DATE: 20250204
